FAERS Safety Report 9906205 (Version 2)
Quarter: 2014Q2

REPORT INFORMATION
  Report Type: Spontaneous
  Country: JP (occurrence: JP)
  Receive Date: 20140218
  Receipt Date: 20140411
  Transmission Date: 20141212
  Serious: Yes (Hospitalization, Other)
  Sender: FDA-Public Use
  Company Number: JP-BAYER-2014-025200

PATIENT
  Age: 64 Year
  Sex: Male
  Weight: 54 kg

DRUGS (8)
  1. STIVARGA [Suspect]
     Indication: COLON CANCER
     Dosage: 160 MG, QD (ON FOR 3 WEEKS AND OFF FOR 1 WEEK)
     Route: 048
     Dates: start: 20140117, end: 20140130
  2. LASIX [Concomitant]
     Dosage: DAILY DOSE 60 MG
     Route: 048
  3. BEPRICOR [Concomitant]
     Dosage: DAILY DOSE 100 MG
     Route: 048
  4. MAIN HEART AMEL [Concomitant]
     Dosage: DAILY DOSE 2.5 MG
     Route: 048
  5. PRADAXA [Concomitant]
     Dosage: DAILY DOSE 300 MG
     Route: 048
  6. ASPARA K [Concomitant]
     Dosage: UNK
     Route: 048
  7. ATORVASTATIN [Concomitant]
     Dosage: DAILY DOSE 10 MG
     Route: 048
  8. PYDOXAL [Concomitant]

REACTIONS (2)
  - Cardiac failure [Recovering/Resolving]
  - Decreased appetite [Recovering/Resolving]
